FAERS Safety Report 8453667 (Version 4)
Quarter: 2012Q4

REPORT INFORMATION
  Report Type: 
  Country: JP (occurrence: JP)
  Receive Date: 20120312
  Receipt Date: 20121127
  Transmission Date: 20130627
  Serious: Yes (Hospitalization, Other)
  Sender: FDA-Public Use
  Company Number: JP-ROCHE-1044995

PATIENT
  Age: 64 Year
  Sex: Female
  Weight: 77 kg

DRUGS (20)
  1. AVASTIN [Suspect]
     Indication: COLON CANCER METASTATIC
     Dosage: Dosage is uncertain.
     Route: 041
     Dates: start: 20110315, end: 20110929
  2. AVASTIN [Suspect]
     Indication: COLON CANCER METASTATIC
     Route: 041
     Dates: start: 20111013, end: 20111027
  3. AVASTIN [Suspect]
     Indication: COLON CANCER METASTATIC
     Route: 041
     Dates: start: 20111213, end: 20120110
  4. AVASTIN [Suspect]
     Route: 041
  5. ELPLAT [Concomitant]
     Indication: COLON CANCER METASTATIC
     Route: 041
     Dates: start: 20110315, end: 20110929
  6. ELPLAT [Concomitant]
     Dosage: dosage unceratin
     Route: 041
  7. ISOVORIN [Concomitant]
     Indication: COLON CANCER METASTATIC
     Route: 041
     Dates: start: 20110315, end: 20110929
  8. ISOVORIN [Concomitant]
     Indication: COLON CANCER METASTATIC
     Route: 041
     Dates: start: 20111013
  9. ISOVORIN [Concomitant]
     Route: 041
  10. 5-FU [Concomitant]
     Indication: COLON CANCER METASTATIC
     Route: 040
     Dates: start: 20110315, end: 20110929
  11. 5-FU [Concomitant]
     Indication: COLON CANCER METASTATIC
     Route: 040
     Dates: start: 20110315, end: 201109
  12. 5-FU [Concomitant]
     Indication: COLON CANCER METASTATIC
     Route: 040
     Dates: start: 20111013
  13. 5-FU [Concomitant]
     Indication: COLON CANCER METASTATIC
     Route: 041
     Dates: start: 20111013
  14. 5-FU [Concomitant]
     Route: 041
  15. 5-FU [Concomitant]
     Route: 041
  16. CRESTOR [Concomitant]
     Indication: HYPERLIPIDAEMIA
     Route: 048
     Dates: start: 20110913
  17. NOVORAPID [Concomitant]
     Indication: TYPE 2 DIABETES MELLITUS
     Route: 058
     Dates: start: 20110517, end: 20110808
  18. NOVORAPID [Concomitant]
     Indication: TYPE 2 DIABETES MELLITUS
     Route: 058
     Dates: start: 20110809
  19. BLOPRESS [Concomitant]
     Indication: HYPERTENSION
     Route: 048
     Dates: start: 20110517
  20. LANTUS [Concomitant]
     Indication: TYPE 2 DIABETES MELLITUS
     Route: 058
     Dates: start: 20110712

REACTIONS (5)
  - Pneumothorax [Recovered/Resolved]
  - Pulmonary fistula [Unknown]
  - Impaired healing [Unknown]
  - Pulmonary embolism [Unknown]
  - Venous thrombosis limb [Unknown]
